FAERS Safety Report 9647601 (Version 1)
Quarter: 2013Q4

REPORT INFORMATION
  Report Type: Report from Study
  Country: US (occurrence: US)
  Receive Date: 20131028
  Receipt Date: 20131028
  Transmission Date: 20140711
  Serious: Yes (Hospitalization)
  Sender: FDA-Public Use
  Company Number: US-ROCHE-1295192

PATIENT
  Age: 52 Year
  Sex: Female
  Weight: 108.96 kg

DRUGS (21)
  1. XOLAIR [Suspect]
     Indication: ASTHMA
     Route: 058
  2. ADVAIR [Concomitant]
     Indication: ASTHMA
     Route: 048
  3. SINGULAIR [Concomitant]
     Indication: ASTHMA
     Route: 048
  4. SINGULAIR [Concomitant]
     Indication: HYPERSENSITIVITY
  5. VERAMYST [Concomitant]
     Indication: HYPERSENSITIVITY
     Dosage: 2 SQUIRTS IN EACH NOSTRIL
     Route: 065
  6. RHINOCORT [Concomitant]
     Indication: HYPERSENSITIVITY
     Dosage: 2 SQUIRTS IN EACH NOSTRIL
     Route: 065
  7. NEXIUM [Concomitant]
     Indication: GASTROOESOPHAGEAL REFLUX DISEASE
     Route: 048
  8. LEVOTHROID [Concomitant]
     Indication: HYPOTHYROIDISM
     Route: 048
  9. LODINE [Concomitant]
     Route: 048
  10. KLONOPIN [Concomitant]
     Indication: ANXIETY
     Dosage: AS NEEDED
     Route: 065
  11. KLONOPIN [Concomitant]
     Indication: DEPRESSION
  12. PERCOCET [Concomitant]
     Indication: PAIN
     Route: 048
  13. WELLBUTRIN [Concomitant]
     Indication: ANXIETY
     Route: 048
  14. WELLBUTRIN [Concomitant]
     Indication: DEPRESSION
  15. CELEXA (UNITED STATES) [Concomitant]
     Indication: ANXIETY
     Route: 048
  16. CELEXA (UNITED STATES) [Concomitant]
     Indication: DEPRESSION
  17. ZYRTEC [Concomitant]
     Indication: HYPERSENSITIVITY
     Route: 048
  18. MUCINEX DM [Concomitant]
     Indication: HYPERSENSITIVITY
     Route: 065
  19. FLEXERIL (UNITED STATES) [Concomitant]
     Route: 065
  20. VENTOLIN INHALER [Concomitant]
     Indication: ASTHMA
     Route: 065
  21. METFORMIN [Concomitant]
     Indication: DIABETES MELLITUS
     Dosage: PILLS
     Route: 065

REACTIONS (1)
  - Pneumonia [Recovered/Resolved]
